FAERS Safety Report 9782126 (Version 2)
Quarter: 2013Q4

REPORT INFORMATION
  Report Type: Spontaneous
  Country: US (occurrence: US)
  Receive Date: 20131226
  Receipt Date: 20131226
  Transmission Date: 20140711
  Serious: Yes (Other)
  Sender: FDA-Public Use
  Company Number: US-AMGEN-USASP2013073924

PATIENT
  Age: 55 Year
  Sex: Female

DRUGS (7)
  1. ENBREL [Suspect]
     Indication: RHEUMATOID ARTHRITIS
     Dosage: 50 MG, QWK
     Route: 058
     Dates: start: 201212
  2. ALEVE [Concomitant]
     Dosage: 220 MG, UNK
  3. KELP                               /01214901/ [Concomitant]
     Dosage: UNK
  4. VITAMIN C                          /00008001/ [Concomitant]
     Dosage: UNK
  5. VITAMIN D                          /00107901/ [Concomitant]
     Dosage: UNK
  6. PLAQUENIL                          /00072602/ [Concomitant]
     Dosage: UNK
  7. PREDNISONE [Concomitant]
     Dosage: UNK

REACTIONS (5)
  - Dacryocystitis [Unknown]
  - Conjunctivitis [Unknown]
  - Lacrimation increased [Unknown]
  - Psoriasis [Unknown]
  - Nasopharyngitis [Unknown]
